FAERS Safety Report 16678594 (Version 1)
Quarter: 2019Q3

REPORT INFORMATION
  Report Type: Spontaneous
  Country: US (occurrence: US)
  Receive Date: 20190807
  Receipt Date: 20190807
  Transmission Date: 20191004
  Serious: Yes (Hospitalization, Other)
  Sender: FDA-Public Use
  Company Number: US-HIKMA PHARMACEUTICALS USA INC.-US-H14001-19-04476

PATIENT
  Sex: Male

DRUGS (7)
  1. DISULFIRAM. [Suspect]
     Active Substance: DISULFIRAM
     Indication: BABESIOSIS
  2. IMIPRAMINE [Suspect]
     Active Substance: IMIPRAMINE
     Indication: BLADDER SPASM
     Route: 065
  3. KETAMINE [Concomitant]
     Active Substance: KETAMINE
     Indication: DEPRESSION
     Route: 042
     Dates: start: 201604, end: 2018
  4. DISULFIRAM. [Suspect]
     Active Substance: DISULFIRAM
     Indication: LYME DISEASE
     Route: 048
     Dates: start: 201801, end: 201802
  5. AMPHETAMINE [Concomitant]
     Active Substance: AMPHETAMINE
     Indication: PRODUCT USED FOR UNKNOWN INDICATION
     Route: 065
  6. DULOXETINE. [Concomitant]
     Active Substance: DULOXETINE
     Indication: PRODUCT USED FOR UNKNOWN INDICATION
     Route: 065
  7. ARIPIPRAZOLE. [Concomitant]
     Active Substance: ARIPIPRAZOLE
     Indication: PRODUCT USED FOR UNKNOWN INDICATION
     Route: 065

REACTIONS (7)
  - Syncope [Recovered/Resolved]
  - Concussion [Recovered/Resolved]
  - Drug interaction [Recovered/Resolved]
  - Off label use [Recovered/Resolved]
  - Therapeutic response unexpected [Recovered/Resolved]
  - Fatigue [Unknown]
  - Off label use [Unknown]

NARRATIVE: CASE EVENT DATE: 201801
